FAERS Safety Report 24372806 (Version 1)
Quarter: 2024Q3

REPORT INFORMATION
  Report Type: Spontaneous
  Country: US (occurrence: US)
  Receive Date: 20240927
  Receipt Date: 20240927
  Transmission Date: 20241017
  Serious: Yes (Other)
  Sender: BAYER
  Company Number: US-BAYER-2024A137654

PATIENT

DRUGS (1)
  1. AFRIN NO DRIP ORIGINAL PUMP MIST [Suspect]
     Active Substance: OXYMETAZOLINE HYDROCHLORIDE
     Indication: Product used for unknown indication
     Dosage: EVERY NIGHT
     Route: 065

REACTIONS (1)
  - Drug dependence [Recovered/Resolved]
